FAERS Safety Report 12278493 (Version 1)
Quarter: 2016Q2

REPORT INFORMATION
  Report Type: Spontaneous
  Country: US (occurrence: US)
  Receive Date: 20160418
  Receipt Date: 20160418
  Transmission Date: 20160815
  Serious: No
  Sender: FDA-Public Use
  Company Number: US-CELGENEUS-USA-2016042724

PATIENT
  Sex: Male

DRUGS (1)
  1. OTEZLA [Suspect]
     Active Substance: APREMILAST
     Indication: PSORIASIS
     Dosage: 10 MILLIGRAM
     Route: 048
     Dates: start: 20160407, end: 20160411

REACTIONS (5)
  - Fatigue [Unknown]
  - Micturition urgency [Unknown]
  - Asthenia [Unknown]
  - Respiratory disorder [Unknown]
  - Headache [Unknown]
